FAERS Safety Report 24698253 (Version 1)
Quarter: 2024Q4

REPORT INFORMATION
  Report Type: Spontaneous
  Country: KW (occurrence: KW)
  Receive Date: 20241204
  Receipt Date: 20241204
  Transmission Date: 20250114
  Serious: Yes (Other)
  Sender: NOVARTIS
  Company Number: KW-002147023-NVSC2024KW229280

PATIENT
  Age: 43 Year
  Sex: Female

DRUGS (6)
  1. GLIVEC [Suspect]
     Active Substance: IMATINIB MESYLATE
     Indication: Chronic myeloid leukaemia
     Route: 065
  2. TASIGNA [Suspect]
     Active Substance: NILOTINIB
     Indication: Chronic myeloid leukaemia
     Dosage: 400 MG, BID
     Route: 048
     Dates: start: 201408
  3. SCEMBLIX [Suspect]
     Active Substance: ASCIMINIB HYDROCHLORIDE
     Indication: Chronic myeloid leukaemia
     Dosage: 40 MG, QD (DAILY)
     Route: 065
     Dates: start: 202403
  4. SCEMBLIX [Suspect]
     Active Substance: ASCIMINIB HYDROCHLORIDE
     Dosage: 40 MG, QD (DAILY)
     Route: 065
  5. BOSUTINIB [Suspect]
     Active Substance: BOSUTINIB
     Indication: Chronic myeloid leukaemia
     Dosage: UNK
     Route: 065
     Dates: start: 202106
  6. PONATINIB [Suspect]
     Active Substance: PONATINIB
     Indication: Product used for unknown indication
     Dosage: 45 MG, QD (DAILY)
     Route: 048
     Dates: start: 202210

REACTIONS (9)
  - Philadelphia chromosome positive [Unknown]
  - Haematology test abnormal [Unknown]
  - Therapeutic response changed [Unknown]
  - Pain [Unknown]
  - Drug intolerance [Unknown]
  - Mouth ulceration [Unknown]
  - Platelet count decreased [Unknown]
  - Dry eye [Unknown]
  - Angiopathy [Unknown]

NARRATIVE: CASE EVENT DATE: 20230501
